FAERS Safety Report 14180277 (Version 1)
Quarter: 2017Q4

REPORT INFORMATION
  Report Type: Spontaneous
  Country: US (occurrence: US)
  Receive Date: 20171110
  Receipt Date: 20171110
  Transmission Date: 20180321
  Serious: No
  Sender: FDA-Public Use
  Company Number: US-OTSUKA-2017_002010

PATIENT
  Sex: Male

DRUGS (2)
  1. NUEDEXTA [Suspect]
     Active Substance: DEXTROMETHORPHAN HYDROBROMIDE\QUINIDINE SULFATE
     Indication: PRODUCT USED FOR UNKNOWN INDICATION
     Dosage: UNK UNK, QOD (EVERY OTHER DAY)
     Route: 065
  2. NUEDEXTA [Suspect]
     Active Substance: DEXTROMETHORPHAN HYDROBROMIDE\QUINIDINE SULFATE
     Dosage: ONE TWICE DAILY
     Route: 065

REACTIONS (6)
  - Regressive behaviour [Unknown]
  - Decreased interest [Unknown]
  - Inappropriate schedule of drug administration [Unknown]
  - Prosopagnosia [Unknown]
  - Inability to afford medication [Unknown]
  - Aggression [Unknown]
